FAERS Safety Report 21266914 (Version 1)
Quarter: 2022Q3

REPORT INFORMATION
  Report Type: Spontaneous
  Country: CN (occurrence: CN)
  Receive Date: 20220829
  Receipt Date: 20220829
  Transmission Date: 20221026
  Serious: Yes (Life-Threatening, Hospitalization, Other)
  Sender: FDA-Public Use
  Company Number: CN-SA-SAC20220825001779

PATIENT
  Age: 80 Year
  Sex: Male

DRUGS (6)
  1. ENOXAPARIN SODIUM [Suspect]
     Active Substance: ENOXAPARIN SODIUM
     Indication: Acute myocardial infarction
     Dosage: 2000 IU NUMBER OF USE 1 DAY NUMBER OF USE 1
     Route: 058
     Dates: start: 20220802, end: 20220802
  2. HEPARIN SODIUM [Suspect]
     Active Substance: HEPARIN SODIUM
     Indication: Chronic kidney disease
     Dosage: 12500 IU NUMBER OF USE 1 DAY NUMBER OF USE 1
     Route: 010
     Dates: start: 20220723, end: 20220723
  3. HEPARIN SODIUM [Suspect]
     Active Substance: HEPARIN SODIUM
     Dosage: 4250 IU NUMBER OF USE 1 DAY NUMBER OF USE 1
     Route: 010
     Dates: start: 20220728, end: 20220728
  4. HEPARIN SODIUM [Suspect]
     Active Substance: HEPARIN SODIUM
     Dosage: 4250 IU NUMBER OF USE 1 DAY NUMBER OF USE 1
     Route: 010
     Dates: start: 20220804, end: 20220804
  5. HEPARIN SODIUM [Suspect]
     Active Substance: HEPARIN SODIUM
     Dosage: 12500 NUMBER OF USE 1 DAY NUMBER OF USE 1
     Route: 010
     Dates: start: 20220804, end: 20220804
  6. HEPARIN SODIUM [Suspect]
     Active Substance: HEPARIN SODIUM
     Dosage: 5000 IU NUMBER OF USE 1 DAY NUMBER OF USE 1
     Dates: start: 20220805, end: 20220809

REACTIONS (3)
  - Deep vein thrombosis [Recovering/Resolving]
  - Platelet count decreased [Recovering/Resolving]
  - Anti-platelet antibody positive [Recovering/Resolving]

NARRATIVE: CASE EVENT DATE: 20220808
